FAERS Safety Report 7249149-9 (Version None)
Quarter: 2011Q1

REPORT INFORMATION
  Report Type: 
  Country: None (occurrence: None)
  Receive Date: 20110128
  Receipt Date: 20101116
  Transmission Date: 20110831
  Serious: Yes (Life-Threatening, Hospitalization)
  Sender: FDA-Public Use
  Company Number: US-BAYER-201023237NA

PATIENT
  Sex: Female
  Weight: 53.968 kg

DRUGS (11)
  1. VICODIN [Concomitant]
     Indication: PAIN
     Dosage: UNK
     Dates: start: 20090702
  2. AZITHROMYCIN [Concomitant]
     Dosage: UNK
     Dates: start: 20091201
  3. CLINDAMYCIN [Concomitant]
     Dosage: UNK
     Dates: start: 20101001
  4. YAZ [Suspect]
     Route: 048
  5. HYDROCODONE BITARTRATE AND ACETAMINOPHEN [Concomitant]
     Dosage: UNK
     Dates: start: 20090707
  6. OCELLA [Suspect]
     Indication: CONTRACEPTION
     Dosage: 1 U, QD
     Route: 048
     Dates: start: 20060701, end: 20090901
  7. LORAZEPAM [Concomitant]
     Indication: ANXIETY
     Dosage: 0.5 MG, UNK
     Route: 048
     Dates: start: 20050715
  8. MINOCYCLINE HCL [Concomitant]
     Dosage: UNK
     Dates: start: 20101001
  9. PROMETHAZINE [Concomitant]
     Indication: NAUSEA
     Dosage: 25 MG, UNK
     Dates: start: 20090701
  10. YASMIN [Suspect]
     Indication: CONTRACEPTION
     Dosage: UNKNOWN
     Route: 048
     Dates: start: 20060701, end: 20090901
  11. ACETAMINOPHEN [Concomitant]
     Indication: ANALGESIC THERAPY
     Dosage: UNK
     Dates: start: 20050101, end: 20090601

REACTIONS (11)
  - NAUSEA [None]
  - GASTRITIS [None]
  - ABDOMINAL PAIN UPPER [None]
  - CHOLELITHIASIS [None]
  - ANAEMIA [None]
  - PANIC ATTACK [None]
  - PAIN [None]
  - INTRA-ABDOMINAL HAEMATOMA [None]
  - CHEST PAIN [None]
  - VOMITING [None]
  - ABDOMINAL PAIN [None]
